FAERS Safety Report 6324397-0 (Version None)
Quarter: 2009Q3

REPORT INFORMATION
  Report Type: 
  Country: None (occurrence: None)
  Receive Date: 20090824
  Receipt Date: 20090429
  Transmission Date: 20100115
  Serious: No
  Sender: FDA-Public Use
  Company Number: US-ABBOTT-09P-163-0570611-00

PATIENT
  Sex: Female

DRUGS (6)
  1. NIASPAN [Suspect]
     Indication: BLOOD TRIGLYCERIDES INCREASED
     Dosage: AT BEDTIME
     Dates: start: 20090413, end: 20090427
  2. NIASPAN [Suspect]
     Indication: BLOOD CHOLESTEROL INCREASED
  3. CELEBREX [Concomitant]
     Indication: DRUG USE FOR UNKNOWN INDICATION
  4. ACTOS [Concomitant]
     Indication: DRUG USE FOR UNKNOWN INDICATION
  5. LISINOPRIL [Concomitant]
     Indication: DRUG USE FOR UNKNOWN INDICATION
  6. ASPIRIN [Concomitant]
     Indication: DRUG USE FOR UNKNOWN INDICATION

REACTIONS (5)
  - CHILLS [None]
  - HYPOAESTHESIA [None]
  - PAIN IN EXTREMITY [None]
  - PALPITATIONS [None]
  - PRURITUS [None]
